FAERS Safety Report 22931193 (Version 3)
Quarter: 2025Q1

REPORT INFORMATION
  Report Type: Report from Study
  Country: BE (occurrence: BE)
  Receive Date: 20230911
  Receipt Date: 20250218
  Transmission Date: 20250409
  Serious: Yes (Other)
  Sender: ABBVIE
  Company Number: BE-JNJFOC-20200942351

PATIENT
  Age: 59 Year
  Sex: Female

DRUGS (4)
  1. IBRUTINIB [Suspect]
     Active Substance: IBRUTINIB
     Indication: Waldenstrom^s macroglobulinaemia
     Route: 048
     Dates: start: 20181211, end: 20190318
  2. IBRUTINIB [Suspect]
     Active Substance: IBRUTINIB
     Indication: Waldenstrom^s macroglobulinaemia
     Route: 048
     Dates: start: 20190319, end: 20190729
  3. IBRUTINIB [Suspect]
     Active Substance: IBRUTINIB
     Indication: Waldenstrom^s macroglobulinaemia
     Route: 048
     Dates: start: 20190730, end: 20191021
  4. IBRUTINIB [Suspect]
     Active Substance: IBRUTINIB
     Indication: Waldenstrom^s macroglobulinaemia
     Dosage: 420 MG / ONCE A DAY
     Route: 048
     Dates: start: 20170614, end: 20181210

REACTIONS (9)
  - Pyoderma gangrenosum [Not Recovered/Not Resolved]
  - Limb injury [Recovered/Resolved]
  - Onychoclasis [Not Recovered/Not Resolved]
  - Ecchymosis [Not Recovered/Not Resolved]
  - Localised infection [Recovered/Resolved]
  - Infection [Not Recovered/Not Resolved]
  - Cervicobrachial syndrome [Recovered/Resolved]
  - Headache [Recovered/Resolved]
  - Nausea [Recovered/Resolved]

NARRATIVE: CASE EVENT DATE: 20170622
